FAERS Safety Report 7764141-3 (Version None)
Quarter: 2011Q3

REPORT INFORMATION
  Report Type: 
  Country: None (occurrence: None)
  Receive Date: 20110921
  Receipt Date: 20110913
  Transmission Date: 20111222
  Serious: Yes (Hospitalization, Other)
  Sender: FDA-Public Use
  Company Number: US-AMGEN-USASP2011041581

PATIENT
  Age: 63 Year
  Sex: Female
  Weight: 61.678 kg

DRUGS (4)
  1. PROMETHAZINE [Concomitant]
  2. ADVAIR DISKUS 100/50 [Concomitant]
  3. OXYCODONE HCL [Concomitant]
     Indication: PAIN
     Dosage: 30 MG, PRN
     Route: 048
  4. XGEVA [Suspect]
     Indication: METASTASES TO BONE
     Dosage: 120 MG, Q4WK
     Route: 058
     Dates: start: 20110728, end: 20110728

REACTIONS (10)
  - DECREASED APPETITE [None]
  - RENAL FAILURE CHRONIC [None]
  - VASCULAR CALCIFICATION [None]
  - DYSURIA [None]
  - BACK PAIN [None]
  - ANAEMIA [None]
  - ABDOMINAL PAIN [None]
  - METABOLIC ACIDOSIS [None]
  - SINUS TACHYCARDIA [None]
  - HYPOCALCAEMIA [None]
